FAERS Safety Report 5545611-5 (Version None)
Quarter: 2007Q4

REPORT INFORMATION
  Report Type: 
  Country: None (occurrence: None)
  Receive Date: 20071211
  Receipt Date: 20071128
  Transmission Date: 20080405
  Serious: Yes (Other)
  Sender: FDA-Public Use
  Company Number: CA-ELI_LILLY_AND_COMPANY-CA200712000236

PATIENT
  Age: 16 Year
  Sex: Male

DRUGS (2)
  1. STRATTERA [Suspect]
     Dosage: 58 MG, UNK
     Dates: start: 20050901, end: 20060701
  2. STRATTERA [Suspect]
     Dates: start: 20061101

REACTIONS (3)
  - ALANINE AMINOTRANSFERASE ABNORMAL [None]
  - HEPATIC STEATOSIS [None]
  - LIVER FUNCTION TEST ABNORMAL [None]
